FAERS Safety Report 19699557 (Version 2)
Quarter: 2021Q3

REPORT INFORMATION
  Report Type: Spontaneous
  Country: US (occurrence: US)
  Receive Date: 20210813
  Receipt Date: 20210816
  Transmission Date: 20211014
  Serious: Yes (Other)
  Sender: FDA-Public Use
  Company Number: US-PFIZER INC-202101005474

PATIENT
  Age: 57 Year
  Sex: Female
  Weight: 118 kg

DRUGS (1)
  1. INLYTA [Suspect]
     Active Substance: AXITINIB
     Indication: RENAL CANCER
     Dosage: 5 MG, 2X/DAY 12 HOURS APART
     Route: 048
     Dates: start: 20210618

REACTIONS (8)
  - Thyroid function test abnormal [Unknown]
  - Nasal discomfort [Unknown]
  - Genital discomfort [Unknown]
  - Eyelid irritation [Unknown]
  - Oral pain [Unknown]
  - Stomatitis [Unknown]
  - Renal impairment [Unknown]
  - Genital rash [Unknown]

NARRATIVE: CASE EVENT DATE: 2021
